FAERS Safety Report 22206931 (Version 1)
Quarter: 2023Q2

REPORT INFORMATION
  Report Type: Report from Study
  Country: AR (occurrence: AR)
  Receive Date: 20230413
  Receipt Date: 20230413
  Transmission Date: 20230722
  Serious: Yes (Other)
  Sender: FDA-Public Use
  Company Number: AR-002147023-PHHY2017AR116190

PATIENT
  Age: 62 Year
  Sex: Female

DRUGS (2)
  1. COSENTYX [Suspect]
     Active Substance: SECUKINUMAB
     Indication: Psoriasis
     Dosage: 300 MG, QMO
     Route: 065
     Dates: start: 2011
  2. COSENTYX [Suspect]
     Active Substance: SECUKINUMAB
     Dosage: 300 MG, QMO
     Route: 058
     Dates: start: 20120101

REACTIONS (18)
  - Angina pectoris [Unknown]
  - Pyrexia [Recovering/Resolving]
  - Psoriasis [Not Recovered/Not Resolved]
  - Malaise [Unknown]
  - Nasal congestion [Not Recovered/Not Resolved]
  - Throat tightness [Recovering/Resolving]
  - Allergic bronchitis [Recovering/Resolving]
  - Pyrexia [Recovered/Resolved]
  - Influenza [Not Recovered/Not Resolved]
  - Urinary tract infection [Recovered/Resolved]
  - Tonsillitis [Not Recovered/Not Resolved]
  - Cough [Not Recovered/Not Resolved]
  - Chest discomfort [Unknown]
  - Hypersensitivity [Not Recovered/Not Resolved]
  - Bronchospasm [Recovering/Resolving]
  - Decreased immune responsiveness [Unknown]
  - Therapeutic product effect variable [Unknown]
  - Drug ineffective [Unknown]

NARRATIVE: CASE EVENT DATE: 20170901
